FAERS Safety Report 10160486 (Version 1)
Quarter: 2014Q2

REPORT INFORMATION
  Report Type: Spontaneous
  Country: US (occurrence: US)
  Receive Date: 20140508
  Receipt Date: 20140508
  Transmission Date: 20141212
  Serious: Yes (Other)
  Sender: FDA-Public Use
  Company Number: US-PFIZER INC-2014123812

PATIENT
  Age: 59 Year
  Sex: Male
  Weight: 126.98 kg

DRUGS (11)
  1. LYRICA [Suspect]
     Indication: NEUROPATHY PERIPHERAL
     Dosage: 200 MG, 3X/DAY
     Dates: start: 201206
  2. METFORMIN [Concomitant]
     Dosage: 500 MG, 2X/DAY
  3. GLIPIZIDE [Concomitant]
     Dosage: 5 MG, 2X/DAY
  4. PRAVASTATIN [Concomitant]
     Dosage: 40 MG, 2X/DAY
  5. EFEXOR XR [Concomitant]
     Dosage: 150 MG, DAILY
  6. ATENOLOL [Concomitant]
     Dosage: 50 MG, DAILY
  7. ENALAPRIL [Concomitant]
     Dosage: 2.5 MG, DAILY
  8. NEXIUM [Concomitant]
     Dosage: 20 MG, DAILY
  9. FISH OIL [Concomitant]
     Dosage: UNK
  10. ASPIRIN [Concomitant]
     Dosage: UNK
  11. VICODIN [Concomitant]
     Dosage: UNK

REACTIONS (1)
  - Venom poisoning [Unknown]
